FAERS Safety Report 22872542 (Version 2)
Quarter: 2024Q2

REPORT INFORMATION
  Report Type: Report from Study
  Country: CA (occurrence: CA)
  Receive Date: 20230828
  Receipt Date: 20240524
  Transmission Date: 20240716
  Serious: Yes (Death, Hospitalization, Other)
  Sender: FDA-Public Use
  Company Number: CA-SUN PHARMACEUTICAL INDUSTRIES LTD-2023R1-382564

PATIENT
  Age: 90 Year
  Sex: Female

DRUGS (1)
  1. TILDRAKIZUMAB [Suspect]
     Active Substance: TILDRAKIZUMAB
     Indication: Psoriasis
     Dosage: 100 MILLIGRAM, WK 0,4,12
     Route: 058
     Dates: start: 20220830

REACTIONS (6)
  - Fall [Unknown]
  - Shoulder fracture [Unknown]
  - Infection [Unknown]
  - Inappropriate schedule of product administration [Unknown]
  - Product dose omission issue [Unknown]
  - COVID-19 [Fatal]

NARRATIVE: CASE EVENT DATE: 20221220
